FAERS Safety Report 10430130 (Version 1)
Quarter: 2014Q3

REPORT INFORMATION
  Report Type: Spontaneous
  Country: US (occurrence: None)
  Receive Date: 20140902
  Receipt Date: 20140902
  Transmission Date: 20150326
  Serious: No
  Sender: FDA-Public Use
  Company Number: None

PATIENT
  Age: 86 Year
  Sex: Male
  Weight: 144.1 kg

DRUGS (1)
  1. RIVAROXABAN [Suspect]
     Active Substance: RIVAROXABAN
     Indication: ATRIAL FIBRILLATION
     Dosage: MG   PO?DATES OF USE: 07/10/2014 THRU ~08/04/2014
     Route: 048
     Dates: start: 20140710, end: 20140804

REACTIONS (2)
  - Muscle spasms [None]
  - Feeding disorder [None]

NARRATIVE: CASE EVENT DATE: 20140807
